FAERS Safety Report 10382086 (Version 7)
Quarter: 2015Q2

REPORT INFORMATION
  Report Type: Report from Study
  Country: US (occurrence: US)
  Receive Date: 20140813
  Receipt Date: 20150526
  Transmission Date: 20150821
  Serious: Yes (Other)
  Sender: FDA-Public Use
  Company Number: US-SA-2014SA105915

PATIENT
  Age: 50 Year
  Sex: Female

DRUGS (11)
  1. IBUPROFEN. [Concomitant]
     Active Substance: IBUPROFEN
  2. AUBAGIO [Suspect]
     Active Substance: TERIFLUNOMIDE
     Indication: MULTIPLE SCLEROSIS
     Route: 048
     Dates: start: 20140703, end: 20140731
  3. LISINOPRIL. [Concomitant]
     Active Substance: LISINOPRIL
  4. FIORICET [Concomitant]
     Active Substance: ACETAMINOPHEN\BUTALBITAL\CAFFEINE
  5. AUBAGIO [Suspect]
     Active Substance: TERIFLUNOMIDE
     Indication: MULTIPLE SCLEROSIS
     Route: 048
     Dates: start: 20140801, end: 20140804
  6. BACLOFEN. [Concomitant]
     Active Substance: BACLOFEN
  7. HYDROCODONE [Concomitant]
     Active Substance: HYDROCODONE
  8. METOPROLOL [Concomitant]
     Active Substance: METOPROLOL
  9. AUBAGIO [Suspect]
     Active Substance: TERIFLUNOMIDE
     Indication: MULTIPLE SCLEROSIS
     Route: 048
     Dates: start: 20140805, end: 20141101
  10. AUBAGIO [Suspect]
     Active Substance: TERIFLUNOMIDE
     Indication: MULTIPLE SCLEROSIS
     Route: 048
     Dates: start: 20150514
  11. CEPHALEXIN. [Concomitant]
     Active Substance: CEPHALEXIN

REACTIONS (15)
  - Malaise [Unknown]
  - Diarrhoea [Unknown]
  - Migraine [Unknown]
  - Dyspnoea [Recovered/Resolved]
  - Malaise [Unknown]
  - Eye haemorrhage [Recovered/Resolved]
  - Cough [Recovered/Resolved]
  - Abdominal pain [Recovered/Resolved]
  - Scleral disorder [Recovered/Resolved]
  - Paraesthesia [Recovered/Resolved]
  - Nasopharyngitis [Recovered/Resolved]
  - Depressed mood [Unknown]
  - Tremor [Unknown]
  - Nausea [Recovered/Resolved]
  - Diarrhoea [Recovered/Resolved]

NARRATIVE: CASE EVENT DATE: 20140802
